FAERS Safety Report 5259398-7 (Version None)
Quarter: 2007Q1

REPORT INFORMATION
  Report Type: 
  Country: None (occurrence: None)
  Receive Date: 20070305
  Receipt Date: 20070220
  Transmission Date: 20070707
  Serious: Yes (Death)
  Sender: FDA-Public Use
  Company Number: OSCN-PR-0609S-0268

PATIENT
  Age: 23 Year
  Sex: Female

DRUGS (1)
  1. OMNISCAN [Suspect]
     Indication: CELLULITIS
     Dosage: 12 ML, SINGLE DOSE, I.V.
     Route: 042
     Dates: start: 20020212, end: 20020212

REACTIONS (16)
  - ABASIA [None]
  - ARTHRALGIA [None]
  - ASTHENIA [None]
  - BEDRIDDEN [None]
  - BONE SCAN ABNORMAL [None]
  - INDURATION [None]
  - JOINT EFFUSION [None]
  - JOINT SWELLING [None]
  - NEPHROGENIC FIBROSING DERMOPATHY [None]
  - PAIN [None]
  - PAIN IN EXTREMITY [None]
  - PATHOGEN RESISTANCE [None]
  - PRURITUS [None]
  - SEPSIS [None]
  - SKIN TIGHTNESS [None]
  - XEROSIS [None]
